FAERS Safety Report 15334226 (Version 1)
Quarter: 2018Q3

REPORT INFORMATION
  Report Type: Spontaneous
  Country: US (occurrence: US)
  Receive Date: 20180827
  Receipt Date: 20180827
  Transmission Date: 20181010
  Serious: Yes (Hospitalization)
  Sender: FDA-Public Use
  Company Number: None

PATIENT
  Age: 71 Year
  Sex: Male
  Weight: 81.6 kg

DRUGS (1)
  1. TEMOZOLOMIDE (362856) [Suspect]
     Active Substance: TEMOZOLOMIDE
     Dates: end: 20180807

REACTIONS (6)
  - Headache [None]
  - Muscular weakness [None]
  - Condition aggravated [None]
  - Cerebral radiation injury [None]
  - Aphasia [None]
  - Central nervous system necrosis [None]

NARRATIVE: CASE EVENT DATE: 20180817
